FAERS Safety Report 8170626-0 (Version None)
Quarter: 2012Q1

REPORT INFORMATION
  Report Type: 
  Country: None (occurrence: None)
  Receive Date: 20120228
  Receipt Date: 20120217
  Transmission Date: 20120608
  Serious: Yes (Hospitalization)
  Sender: FDA-Public Use
  Company Number: US-ROCHE-783531

PATIENT
  Sex: Female
  Weight: 59.8 kg

DRUGS (8)
  1. AVASTIN [Suspect]
     Indication: BREAST CANCER
     Dosage: OVER 30-90 MIN ON DAY (CYCLE 9-18). LAST DOSE PRIOR TO SAE 11 FEBRUARY 2011.
     Route: 042
  2. PACLITAXEL [Suspect]
     Indication: BREAST CANCER
     Dosage: OVER 1 HOUR ON DAY 1, 8 AND 15 (CYCLE 5-8)
     Route: 042
  3. NEULASTA [Suspect]
     Indication: BREAST CANCER
     Dosage: ON DAY 2 (CYCLE 1-4)
     Route: 058
  4. FILGRASTIM [Suspect]
     Indication: BREAST CANCER
     Dosage: ON DAYS 2-11 (CYCLE 1-4)
     Route: 058
  5. DOXORUBICIN HCL [Suspect]
     Indication: BREAST CANCER
     Dosage: IVP: ON DAY 1 (CYCLE 1-4)
     Route: 042
  6. CYCLOPHOSPHAMIDE [Suspect]
     Indication: BREAST CANCER
     Dosage: OVER 20-30 MINUTE ON DAY 1 (CYCLE 1-4)
     Route: 042
  7. AVASTIN [Suspect]
     Indication: BREAST CANCER
     Dosage: OVER 30-90 MINUTE ON DAY 1 (CYCLE 1-4). DOSE BLINDED. LAST DOSE PRIOR TO SAE: 7 OCT 2010
     Route: 042
  8. AVASTIN [Suspect]
     Dosage: OVER 30-90 MIN ON DAY 1 (CYCLE 5-8)
     Route: 042

REACTIONS (5)
  - SYNCOPE [None]
  - CONJUNCTIVITIS [None]
  - FRACTURE [None]
  - FEBRILE NEUTROPENIA [None]
  - OCULAR SURFACE DISEASE [None]
